FAERS Safety Report 6333001-7 (Version None)
Quarter: 2009Q3

REPORT INFORMATION
  Report Type: 
  Country: None (occurrence: None)
  Receive Date: 20090828
  Receipt Date: 20090824
  Transmission Date: 20100115
  Serious: Yes (Other)
  Sender: FDA-Public Use
  Company Number: PHHY2009CA18230

PATIENT
  Sex: Male

DRUGS (2)
  1. SANDOSTATIN LAR [Suspect]
     Indication: HEPATIC NEOPLASM
     Dosage: 30 MG EVERY 4 WEEKS
     Route: 030
     Dates: start: 20081215
  2. ENTROPHEN [Concomitant]

REACTIONS (2)
  - HAEMORRHAGE SUBCUTANEOUS [None]
  - INCISION SITE COMPLICATION [None]
